FAERS Safety Report 12703506 (Version 1)
Quarter: 2016Q3

REPORT INFORMATION
  Report Type: Report from Study
  Country: US (occurrence: US)
  Receive Date: 20160831
  Receipt Date: 20160831
  Transmission Date: 20161109
  Serious: Yes (Other)
  Sender: FDA-Public Use
  Company Number: US-JNJFOC-20160513808

PATIENT
  Age: 84 Year
  Sex: Male

DRUGS (2)
  1. IMBRUVICA [Suspect]
     Active Substance: IBRUTINIB
     Indication: DIFFUSE LARGE B-CELL LYMPHOMA
     Route: 048
     Dates: start: 20160415, end: 20160712
  2. IMBRUVICA [Suspect]
     Active Substance: IBRUTINIB
     Indication: CHRONIC LYMPHOCYTIC LEUKAEMIA
     Route: 048
     Dates: start: 20160415, end: 20160712

REACTIONS (10)
  - Heart rate decreased [Not Recovered/Not Resolved]
  - Off label use [Recovered/Resolved]
  - Dizziness [Unknown]
  - Dry mouth [Not Recovered/Not Resolved]
  - Pleural effusion [Unknown]
  - Atrial fibrillation [Unknown]
  - Adverse event [Unknown]
  - Intellectual disability [Unknown]
  - Product use issue [Recovered/Resolved]
  - Lung infection [Unknown]

NARRATIVE: CASE EVENT DATE: 2016
